FAERS Safety Report 18677833 (Version 4)
Quarter: 2021Q3

REPORT INFORMATION
  Report Type: Spontaneous
  Country: US (occurrence: US)
  Receive Date: 20201229
  Receipt Date: 20210924
  Transmission Date: 20211014
  Serious: Yes (Other)
  Sender: FDA-Public Use
  Company Number: US-PFIZER INC-2020515995

PATIENT
  Age: 64 Year
  Sex: Female

DRUGS (1)
  1. IBRANCE [Suspect]
     Active Substance: PALBOCICLIB
     Indication: BREAST CANCER FEMALE
     Dosage: 125 MG, CYCLIC (DAILY FOR 21 DAYS, 7 DAYS OFF)
     Route: 048
     Dates: start: 20201024

REACTIONS (13)
  - Leukopenia [Not Recovered/Not Resolved]
  - Fatigue [Recovering/Resolving]
  - Contusion [Not Recovered/Not Resolved]
  - Neutropenia [Not Recovered/Not Resolved]
  - Dyspepsia [Recovering/Resolving]
  - Anaemia [Not Recovered/Not Resolved]
  - Rash [Recovering/Resolving]
  - White blood cell count decreased [Recovering/Resolving]
  - Alopecia [Not Recovered/Not Resolved]
  - COVID-19 [Not Recovered/Not Resolved]
  - Dry skin [Unknown]
  - Haemorrhage [Not Recovered/Not Resolved]
  - Thrombocytopenia [Not Recovered/Not Resolved]

NARRATIVE: CASE EVENT DATE: 20201024
